APPROVED DRUG PRODUCT: MECLIZINE HYDROCHLORIDE
Active Ingredient: MECLIZINE HYDROCHLORIDE
Strength: 25MG
Dosage Form/Route: TABLET, CHEWABLE;ORAL
Application: A088733 | Product #001
Applicant: PLIVA INC
Approved: Dec 11, 1985 | RLD: No | RS: No | Type: DISCN